FAERS Safety Report 7945715-3 (Version None)
Quarter: 2011Q4

REPORT INFORMATION
  Report Type: 
  Country: None (occurrence: None)
  Receive Date: 20111129
  Receipt Date: 20110718
  Transmission Date: 20120403
  Serious: No
  Sender: FDA-Public Use
  Company Number: US-MYLANLABS-2011S1013588

PATIENT
  Age: 79 Year
  Sex: Male

DRUGS (4)
  1. CLONAZEPAM [Suspect]
     Indication: INSOMNIA
     Dates: start: 20100501, end: 20110601
  2. CARBIDOPA AND LEVODOPA [Suspect]
     Indication: PARKINSON'S DISEASE
     Dates: start: 20090101
  3. CARBIDOPA AND LEVODOPA [Suspect]
     Dates: start: 20090101
  4. ACETAMINOPHEN [Concomitant]

REACTIONS (1)
  - HYPERSENSITIVITY [None]
